FAERS Safety Report 5000097-4 (Version None)
Quarter: 2006Q2

REPORT INFORMATION
  Report Type: 
  Country: None (occurrence: None)
  Receive Date: 20060509
  Receipt Date: 20060424
  Transmission Date: 20061013
  Serious: Yes (Hospitalization)
  Sender: FDA-Public Use
  Company Number: ES200604004338

PATIENT
  Age: 74 Year
  Sex: Female

DRUGS (5)
  1. FORTEO [Suspect]
     Indication: OSTEOPOROSIS
     Dosage: 20 UG, DAILY (1/D), SUBCUTANEOUS
     Route: 058
     Dates: start: 20060304
  2. FORTEO PEN (FORTEO PEN) [Concomitant]
  3. ENALAPRIL MALEATE [Concomitant]
  4. ESCITALOPRAM (ESCITALOPRAM) [Concomitant]
  5. OMEPRAZOLE [Concomitant]

REACTIONS (1)
  - HYPONATRAEMIA [None]
